FAERS Safety Report 9143850 (Version 13)
Quarter: 2014Q1

REPORT INFORMATION
  Report Type: Report from Study
  Country: GB (occurrence: GB)
  Receive Date: 20130306
  Receipt Date: 20140221
  Transmission Date: 20141002
  Serious: Yes (Hospitalization, Other)
  Sender: FDA-Public Use
  Company Number: GB-ROCHE-1180327

PATIENT
  Age: 64 Year
  Sex: Male
  Weight: 89 kg

DRUGS (15)
  1. PEG-INTERFERON ALFA 2A [Suspect]
     Indication: HEPATITIS C
     Route: 058
     Dates: start: 20121231, end: 20130218
  2. RIBAVIRIN [Suspect]
     Indication: HEPATITIS C
     Route: 048
     Dates: start: 20121231, end: 20130224
  3. VX-222 [Suspect]
     Indication: HEPATITIS C
     Route: 048
     Dates: start: 20121231, end: 20130224
  4. TELAPREVIR [Suspect]
     Indication: HEPATITIS C
     Route: 048
     Dates: start: 20121231, end: 20130224
  5. CO-AMILOFRUSE [Concomitant]
  6. BISOPROLOL [Concomitant]
     Indication: HYPERTENSION
     Dosage: 1.25 MG IN ONCE DAY
     Route: 048
  7. CITALOPRAM [Concomitant]
     Indication: DEPRESSION
     Route: 065
  8. LISINOPRIL [Concomitant]
     Indication: HYPERTENSION
     Route: 065
  9. METFORMIN [Concomitant]
     Indication: BLOOD GLUCOSE INCREASED
     Route: 065
     Dates: start: 20130226, end: 20130311
  10. SIMVASTATIN [Concomitant]
     Route: 065
     Dates: start: 20130226, end: 20130311
  11. LACTULOSE [Concomitant]
     Indication: CONSTIPATION
     Route: 065
     Dates: start: 20130304
  12. FUROSEMIDE [Concomitant]
     Indication: ASCITES
  13. AMILORIDE [Concomitant]
     Indication: ASCITES
  14. CARVEDILOL [Concomitant]
     Indication: HYPERTENSION
  15. INSULIN [Concomitant]
     Indication: DIABETES MELLITUS

REACTIONS (5)
  - Jaundice [Recovered/Resolved]
  - Vomiting [Recovered/Resolved]
  - Ascites [Recovered/Resolved]
  - Abdominal pain [Recovered/Resolved]
  - Hepatic failure [Unknown]
